FAERS Safety Report 8487190-9 (Version None)
Quarter: 2012Q3

REPORT INFORMATION
  Report Type: 
  Country: None (occurrence: None)
  Receive Date: 20120705
  Receipt Date: 20120625
  Transmission Date: 20120928
  Serious: Yes (Hospitalization)
  Sender: FDA-Public Use
  Company Number: FR-ROCHE-1081451

PATIENT
  Age: 1 Month
  Sex: Female

DRUGS (7)
  1. MIDAZOLAM HYDROCHLORIDE [Suspect]
     Indication: SEDATION
     Route: 042
     Dates: start: 20120308, end: 20120319
  2. ZITHROMAX [Concomitant]
     Dates: start: 20120302, end: 20120309
  3. FENTANYL CITRATE [Suspect]
     Indication: SEDATION
     Route: 042
     Dates: start: 20120308, end: 20120319
  4. MIDAZOLAM HYDROCHLORIDE [Suspect]
     Route: 042
  5. FENTANYL CITRATE [Suspect]
     Route: 042
  6. INSULIN [Concomitant]
     Route: 042
  7. LASIX [Concomitant]
     Route: 042

REACTIONS (3)
  - DRUG WITHDRAWAL SYNDROME [None]
  - SLEEP DISORDER [None]
  - RESPIRATORY DISORDER [None]
